FAERS Safety Report 22140065 (Version 1)
Quarter: 2023Q1

REPORT INFORMATION
  Report Type: Spontaneous
  Country: AU (occurrence: AU)
  Receive Date: 20230327
  Receipt Date: 20230327
  Transmission Date: 20230418
  Serious: Yes (Hospitalization, Other)
  Sender: FDA-Public Use
  Company Number: None

PATIENT
  Age: 29 Year
  Sex: Female

DRUGS (12)
  1. INFLIXIMAB [Suspect]
     Active Substance: INFLIXIMAB
     Indication: Product used for unknown indication
     Dosage: UNKNOWN
     Route: 065
  2. COMIRNATY [Suspect]
     Active Substance: TOZINAMERAN
     Indication: Product used for unknown indication
     Dosage: UNKNOWN
     Route: 065
     Dates: start: 20220215
  3. AMITRIPTYLINE [Concomitant]
     Active Substance: AMITRIPTYLINE
     Indication: Product used for unknown indication
     Dosage: UNKNOWN
     Route: 065
  4. DILTIAZEM HYDROCHLORIDE [Concomitant]
     Active Substance: DILTIAZEM HYDROCHLORIDE
     Indication: Product used for unknown indication
     Dosage: UNKNOWN
     Route: 065
  5. DULOXETINE HYDROCHLORIDE [Concomitant]
     Active Substance: DULOXETINE HYDROCHLORIDE
     Indication: Product used for unknown indication
     Dosage: UNKNOWN
     Route: 065
  6. FOLIC ACID [Concomitant]
     Active Substance: FOLIC ACID
     Indication: Product used for unknown indication
     Dosage: UNKNOWN
     Route: 065
  7. HUMAN IMMUNOGLOBULIN G [Concomitant]
     Active Substance: HUMAN IMMUNOGLOBULIN G
     Indication: Product used for unknown indication
     Dosage: UNKNOWN
     Route: 065
  8. MAGNESIUM ASPARTATE [Concomitant]
     Active Substance: MAGNESIUM ASPARTATE
     Indication: Product used for unknown indication
     Dosage: UNKNOWN
     Route: 065
  9. METHOTREXATE [Concomitant]
     Active Substance: METHOTREXATE
     Indication: Product used for unknown indication
     Dosage: UNKNOWN
     Route: 065
  10. MIRTAZAPINE [Concomitant]
     Active Substance: MIRTAZAPINE
     Indication: Product used for unknown indication
     Dosage: UNKNOWN
     Route: 065
  11. PREDNISOLONE [Concomitant]
     Active Substance: PREDNISOLONE
     Indication: Product used for unknown indication
     Dosage: UNKNOWN
     Route: 065
  12. TAPENTADOL [Concomitant]
     Active Substance: TAPENTADOL
     Indication: Product used for unknown indication
     Dosage: UNKNOWN
     Route: 065

REACTIONS (22)
  - Multiple organ dysfunction syndrome [Recovered/Resolved]
  - Multisystem inflammatory syndrome [Recovering/Resolving]
  - Chest pain [Recovering/Resolving]
  - Encephalopathy [Unknown]
  - Hepatic failure [Unknown]
  - Ischaemic hepatitis [Unknown]
  - Acute hepatic failure [Unknown]
  - Lupus-like syndrome [Unknown]
  - Acute kidney injury [Recovered/Resolved]
  - Sepsis [Unknown]
  - Immunosuppression [Unknown]
  - Pericardial effusion [Recovered/Resolved]
  - Hepatitis acute [Unknown]
  - Lip ulceration [Unknown]
  - Pyrexia [Recovering/Resolving]
  - Serositis [Unknown]
  - Oral herpes [Recovered/Resolved]
  - Alanine aminotransferase increased [Unknown]
  - C-reactive protein increased [Unknown]
  - Troponin increased [Unknown]
  - Hypergammaglobulinaemia [Unknown]
  - Arthralgia [Unknown]

NARRATIVE: CASE EVENT DATE: 20220222
